FAERS Safety Report 8999897 (Version 1)
Quarter: 2013Q1

REPORT INFORMATION
  Report Type: Report from Study
  Country: US (occurrence: US)
  Receive Date: 20130102
  Receipt Date: 20130102
  Transmission Date: 20140127
  Serious: No
  Sender: FDA-Public Use
  Company Number: US-VERTEX PHARMACEUTICALS INC.-2012-026755

PATIENT
  Sex: Male
  Weight: 165 kg

DRUGS (1)
  1. VX-950 (TELAPREVIR) [Suspect]
     Indication: HEPATITIS C
     Dosage: 750 MG, TID
     Route: 048

REACTIONS (4)
  - Contusion [Unknown]
  - Headache [Unknown]
  - Dry skin [Unknown]
  - Rash [Unknown]
